FAERS Safety Report 15058195 (Version 1)
Quarter: 2018Q2

REPORT INFORMATION
  Report Type: Spontaneous
  Country: US (occurrence: US)
  Receive Date: 20180625
  Receipt Date: 20180625
  Transmission Date: 20180711
  Serious: No
  Sender: FDA-Public Use
  Company Number: US-GLENMARK PHARMACEUTICALS-2018GMK033940

PATIENT

DRUGS (1)
  1. LIDOCAINE OINTMENT USP 5% [Suspect]
     Active Substance: LIDOCAINE
     Indication: OSTEOARTHRITIS
     Dosage: UNK, EVERY 8 HOURS
     Route: 065
     Dates: start: 20180312

REACTIONS (3)
  - Drug effective for unapproved indication [Unknown]
  - Product closure removal difficult [Unknown]
  - No adverse event [Unknown]

NARRATIVE: CASE EVENT DATE: 20180312
